FAERS Safety Report 8405835 (Version 9)
Quarter: 2013Q2

REPORT INFORMATION
  Report Type: Spontaneous
  Country: CA (occurrence: CA)
  Receive Date: 20120214
  Receipt Date: 20130402
  Transmission Date: 20140414
  Serious: Yes (Other)
  Sender: FDA-Public Use
  Company Number: CA-ROCHE-1038401

PATIENT
  Age: 36 Year
  Sex: Female

DRUGS (8)
  1. XOLAIR [Suspect]
     Indication: ASTHMA
     Route: 058
     Dates: start: 20111123
  2. XOLAIR [Suspect]
     Route: 058
     Dates: start: 20120516, end: 20121218
  3. XOLAIR [Suspect]
     Route: 065
     Dates: start: 20130104
  4. XOLAIR [Suspect]
     Route: 065
     Dates: start: 20121218, end: 20121218
  5. PULMICORT [Concomitant]
  6. VENTOLIN [Concomitant]
  7. NASONEX [Concomitant]
  8. SYMBICORT [Concomitant]

REACTIONS (14)
  - Hypersensitivity [Unknown]
  - Injection site erythema [Recovering/Resolving]
  - Injection site oedema [Recovering/Resolving]
  - Injection site pruritus [Recovering/Resolving]
  - Injection site swelling [Recovered/Resolved]
  - Eye swelling [Recovering/Resolving]
  - Injection site pain [Recovered/Resolved]
  - Nasal congestion [Recovering/Resolving]
  - Headache [Unknown]
  - Back pain [Unknown]
  - Malaise [Unknown]
  - Drug ineffective [Unknown]
  - Influenza like illness [Unknown]
  - Rash [Unknown]
